FAERS Safety Report 24239074 (Version 3)
Quarter: 2025Q2

REPORT INFORMATION
  Report Type: Report from Study
  Country: US (occurrence: US)
  Receive Date: 20240822
  Receipt Date: 20250417
  Transmission Date: 20250716
  Serious: Yes (Other)
  Sender: AVADEL CNS PHARMA
  Company Number: US-AVADEL CNS PHARMACEUTICALS, LLC-2024AVA00773

PATIENT
  Sex: Female
  Weight: 80.272 kg

DRUGS (25)
  1. LUMRYZ [Suspect]
     Active Substance: SODIUM OXYBATE
     Indication: Narcolepsy
     Dosage: 4.5 G, ONCE NIGHTLY
     Route: 048
     Dates: start: 20240412, end: 20240418
  2. LUMRYZ [Suspect]
     Active Substance: SODIUM OXYBATE
     Indication: Cataplexy
  3. LUMRYZ [Suspect]
     Active Substance: SODIUM OXYBATE
     Indication: Narcolepsy
     Dosage: 6 G, ONCE NIGHTLY
     Route: 048
     Dates: start: 20240419, end: 20240419
  4. LUMRYZ [Suspect]
     Active Substance: SODIUM OXYBATE
     Indication: Cataplexy
     Dosage: 6 G, ONCE NIGHTLY AT BEDTIME
     Route: 048
     Dates: start: 2024
  5. LUMRYZ [Suspect]
     Active Substance: SODIUM OXYBATE
     Dosage: 6 G, ONCE NIGHTLY
     Route: 048
  6. LUMRYZ [Suspect]
     Active Substance: SODIUM OXYBATE
     Indication: Narcolepsy
     Dosage: 7.5 G, ONCE NIGHTLY
     Route: 048
     Dates: start: 20240503, end: 2024
  7. LUMRYZ [Suspect]
     Active Substance: SODIUM OXYBATE
     Indication: Cataplexy
  8. TOPIRAMATE [Concomitant]
     Active Substance: TOPIRAMATE
  9. BACLOFEN [Concomitant]
     Active Substance: BACLOFEN
  10. METFORMIN ER (GASTRIC) [Concomitant]
  11. FAMOTIDINE [Concomitant]
     Active Substance: FAMOTIDINE
  12. SAVELLA [Concomitant]
     Active Substance: MILNACIPRAN HYDROCHLORIDE
  13. PANTOPRAZOLE SODIUM [Concomitant]
     Active Substance: PANTOPRAZOLE SODIUM
  14. OMEPRAZOLE DELAYED RELEASE [OMEPRAZOLE] [Concomitant]
  15. LYRICA [Concomitant]
     Active Substance: PREGABALIN
  16. CYMBALTA [Concomitant]
     Active Substance: DULOXETINE HYDROCHLORIDE
  17. CELECOXIB [Concomitant]
     Active Substance: CELECOXIB
  18. DOMPERIDONE [Concomitant]
     Active Substance: DOMPERIDONE
     Dosage: 10 MG, 2X/DAY
  19. UNSPECIFIED INGREDIENT [Concomitant]
     Active Substance: UNSPECIFIED INGREDIENT
  20. NP THYROID [Concomitant]
     Active Substance: LEVOTHYROXINE\LIOTHYRONINE
  21. MAGNESIUM CITRATE [Concomitant]
     Active Substance: MAGNESIUM CITRATE
  22. VITAMIN D NOS [Concomitant]
     Active Substance: CHOLECALCIFEROL\ERGOCALCIFEROL
  23. SENNA LEAF [Concomitant]
     Active Substance: SENNA LEAF
  24. MALIC ACID [Concomitant]
     Active Substance: MALIC ACID
  25. TIZANIDINE HYDROCHLORIDE [Concomitant]
     Active Substance: TIZANIDINE HYDROCHLORIDE

REACTIONS (18)
  - Surgery [Unknown]
  - Crohn^s disease [Not Recovered/Not Resolved]
  - Sleep apnoea syndrome [Not Recovered/Not Resolved]
  - Flushing [Not Recovered/Not Resolved]
  - Middle insomnia [Not Recovered/Not Resolved]
  - COVID-19 [Unknown]
  - Heart rate increased [Unknown]
  - Muscle spasms [Not Recovered/Not Resolved]
  - Somnambulism [Not Recovered/Not Resolved]
  - Fluid retention [Not Recovered/Not Resolved]
  - Nocturia [Not Recovered/Not Resolved]
  - Paranoia [Not Recovered/Not Resolved]
  - Somnolence [Not Recovered/Not Resolved]
  - Confusional state [Not Recovered/Not Resolved]
  - Headache [Not Recovered/Not Resolved]
  - Anxiety [Unknown]
  - Pain [Not Recovered/Not Resolved]
  - Unevaluable event [Unknown]

NARRATIVE: CASE EVENT DATE: 20240101
